FAERS Safety Report 16156240 (Version 2)
Quarter: 2019Q2

REPORT INFORMATION
  Report Type: Spontaneous
  Country: FR (occurrence: FR)
  Receive Date: 20190404
  Receipt Date: 20190530
  Transmission Date: 20190711
  Serious: Yes (Hospitalization, Other)
  Sender: FDA-Public Use
  Company Number: FR-ASTRAZENECA-2019SE51264

PATIENT
  Age: 8 Month
  Sex: Male
  Weight: 5 kg

DRUGS (4)
  1. SYNAGIS [Suspect]
     Active Substance: PALIVIZUMAB
     Indication: PREMATURE BABY
     Dosage: 70.0MG ONCE/SINGLE ADMINISTRATION
     Route: 030
     Dates: start: 20190207, end: 20190207
  2. SYNAGIS [Suspect]
     Active Substance: PALIVIZUMAB
     Indication: RESPIRATORY DISORDER PROPHYLAXIS
     Dosage: 70.0MG ONCE/SINGLE ADMINISTRATION
     Route: 030
     Dates: start: 20190207, end: 20190207
  3. SYNAGIS [Suspect]
     Active Substance: PALIVIZUMAB
     Indication: PREMATURE BABY
     Dosage: ONCE/SINGLE ADMINISTRATION
     Route: 030
     Dates: start: 201903, end: 201903
  4. SYNAGIS [Suspect]
     Active Substance: PALIVIZUMAB
     Indication: RESPIRATORY DISORDER PROPHYLAXIS
     Dosage: ONCE/SINGLE ADMINISTRATION
     Route: 030
     Dates: start: 201903, end: 201903

REACTIONS (4)
  - Respiratory depression [Recovered/Resolved]
  - Bronchiolitis [Recovered/Resolved]
  - Apnoea [Recovered/Resolved]
  - Wheezing [Recovered/Resolved]

NARRATIVE: CASE EVENT DATE: 2019
